FAERS Safety Report 23550861 (Version 2)
Quarter: 2024Q2

REPORT INFORMATION
  Report Type: Spontaneous
  Country: JP (occurrence: JP)
  Receive Date: 20240221
  Receipt Date: 20240424
  Transmission Date: 20240715
  Serious: Yes (Other)
  Sender: FDA-Public Use
  Company Number: JP-MSD-M2024-06344

PATIENT
  Age: 7 Decade
  Sex: Female

DRUGS (4)
  1. KEYTRUDA [Suspect]
     Active Substance: PEMBROLIZUMAB
     Indication: Cervix carcinoma stage III
     Dosage: 200 MILLIGRAM, Q3W
     Route: 041
  2. PACLITAXEL [Concomitant]
     Active Substance: PACLITAXEL
     Indication: Cervix carcinoma stage III
     Dosage: 175 MILLIGRAM/SQ. METER, Q3W
     Route: 042
  3. CARBOPLATIN [Concomitant]
     Active Substance: CARBOPLATIN
     Indication: Cervix carcinoma stage III
     Dosage: AUC5, Q3W
     Route: 042
  4. BEVACIZUMAB [Concomitant]
     Active Substance: BEVACIZUMAB
     Indication: Cervix carcinoma stage III
     Dosage: 15 MILLIGRAM/KILOGRAM, Q3W
     Route: 042

REACTIONS (1)
  - Hormone receptor positive breast cancer [Unknown]
